FAERS Safety Report 8072635-9 (Version None)
Quarter: 2012Q1

REPORT INFORMATION
  Report Type: 
  Country: None (occurrence: None)
  Receive Date: 20120126
  Receipt Date: 20120123
  Transmission Date: 20120608
  Serious: Yes (Life-Threatening, Hospitalization)
  Sender: FDA-Public Use
  Company Number: FR-SANOFI-AVENTIS-2012SA004548

PATIENT
  Age: 79 Year
  Sex: Female

DRUGS (6)
  1. ASPIRIN [Suspect]
     Route: 048
     Dates: end: 20111203
  2. VALSARTAN/HYDROCHLOROTHIAZIDE [Concomitant]
     Route: 048
  3. LOVENOX [Suspect]
     Indication: THROMBOSIS PROPHYLAXIS
     Route: 058
     Dates: start: 20111118, end: 20111203
  4. ATORVASTATIN [Concomitant]
     Indication: DYSLIPIDAEMIA
     Route: 048
  5. LERCANIDIPINE [Concomitant]
     Route: 048
  6. ARANESP [Concomitant]
     Indication: ANAEMIA

REACTIONS (2)
  - DUODENAL ULCER PERFORATION [None]
  - ANAEMIA [None]
